FAERS Safety Report 16463849 (Version 2)
Quarter: 2019Q2

REPORT INFORMATION
  Report Type: Spontaneous
  Country: DE (occurrence: DE)
  Receive Date: 20190621
  Receipt Date: 20190628
  Transmission Date: 20190711
  Serious: Yes (Life-Threatening)
  Sender: FDA-Public Use
  Company Number: DE-JNJFOC-20190618398

PATIENT
  Age: 92 Year
  Sex: Male
  Weight: 70 kg

DRUGS (14)
  1. XARELTO [Suspect]
     Active Substance: RIVAROXABAN
     Indication: ATRIAL FIBRILLATION
     Dosage: 15 MG, UNK
     Route: 048
  2. LEVODOPA AND BENSERAZIDE HYDROCHLORIDE [Concomitant]
     Active Substance: BENSERAZIDE HYDROCHLORIDE\LEVODOPA
     Dosage: 1 DF, UNK
     Route: 048
  3. AMLODIPIN ABZ [Concomitant]
     Dosage: 5 MG, UNK
     Route: 048
  4. NOVOPULMON [Concomitant]
     Active Substance: BUDESONIDE
     Dosage: 400 ?G, UNK
  5. METOPROLOL SUCCINATE. [Concomitant]
     Active Substance: METOPROLOL SUCCINATE
     Dosage: 95 MG, UNK
     Route: 048
  6. FERRO-SANOL DUODENAL [Concomitant]
     Active Substance: FERROUS GLYCINE SULFATE
     Dosage: 200 MG, UNK
     Route: 048
  7. FORMATRIS [Concomitant]
     Active Substance: FORMOTEROL FUMARATE
     Dosage: 24 ?G, UNK
  8. XIPAMID [Concomitant]
     Active Substance: XIPAMIDE
     Dosage: 10 MG, UNK
     Route: 048
  9. SIMVASTATIN - 1 A PHARMA [Concomitant]
     Dosage: 30 MG, UNK
     Route: 048
  10. POTASSIUM CHLORIDE. [Concomitant]
     Active Substance: POTASSIUM CHLORIDE
     Dosage: 629.4 MG, UNK
     Route: 048
  11. CANDESARTAN. [Concomitant]
     Active Substance: CANDESARTAN
     Dosage: 32 MG, UNK
     Route: 048
  12. DAXAS [Concomitant]
     Active Substance: ROFLUMILAST
     Dosage: 500 ?G, UNK
  13. TORASEMID AAA-PHARMA [Concomitant]
     Active Substance: TORSEMIDE
     Dosage: 10 MG, UNK
     Route: 048
  14. SPIRIVA [Concomitant]
     Active Substance: TIOTROPIUM BROMIDE MONOHYDRATE
     Dosage: 18 ?G, UNK

REACTIONS (3)
  - Coma [Not Recovered/Not Resolved]
  - Intraventricular haemorrhage [Not Recovered/Not Resolved]
  - Haemorrhage intracranial [Not Recovered/Not Resolved]

NARRATIVE: CASE EVENT DATE: 20190518
